FAERS Safety Report 8228907-8 (Version None)
Quarter: 2012Q1

REPORT INFORMATION
  Report Type: 
  Country: None (occurrence: None)
  Receive Date: 20120322
  Receipt Date: 20120308
  Transmission Date: 20120608
  Serious: Yes (Hospitalization)
  Sender: FDA-Public Use
  Company Number: JP-JNJFOC-20111209714

PATIENT
  Sex: Male
  Weight: 63 kg

DRUGS (5)
  1. REMICADE [Suspect]
     Dosage: 02-MAY-2012 (35TH INFUSION)
     Route: 042
     Dates: start: 20110502, end: 20110602
  2. METHOTREXATE [Suspect]
     Indication: RHEUMATOID ARTHRITIS
     Route: 048
     Dates: start: 20060201, end: 20060221
  3. METHOTREXATE [Suspect]
     Route: 048
     Dates: start: 20060222, end: 20060404
  4. REMICADE [Suspect]
     Indication: RHEUMATOID ARTHRITIS
     Dosage: 35 INFUSIONS
     Route: 042
     Dates: start: 20060501
  5. METHOTREXATE [Suspect]
     Route: 048
     Dates: start: 20060405, end: 20110602

REACTIONS (2)
  - HODGKIN'S DISEASE [None]
  - LYMPHOPROLIFERATIVE DISORDER [None]
